FAERS Safety Report 7134468-7 (Version None)
Quarter: 2010Q4

REPORT INFORMATION
  Report Type: 
  Country: None (occurrence: None)
  Receive Date: 20101130
  Receipt Date: 20101130
  Transmission Date: 20110411
  Serious: Yes (Hospitalization)
  Sender: FDA-Public Use
  Company Number: None

PATIENT
  Age: 75 Year
  Sex: Male
  Weight: 43 kg

DRUGS (1)
  1. CIPROFLOXACIN [Suspect]
     Indication: BLADDER CATHETERISATION
     Dosage: 500 MG BID PO
     Route: 048
     Dates: start: 20100927, end: 20100930

REACTIONS (3)
  - CLOSTRIDIAL INFECTION [None]
  - DIARRHOEA [None]
  - HYPOTENSION [None]
